FAERS Safety Report 24099807 (Version 2)
Quarter: 2024Q3

REPORT INFORMATION
  Report Type: Spontaneous
  Country: US (occurrence: US)
  Receive Date: 20240716
  Receipt Date: 20240716
  Transmission Date: 20241017
  Serious: Yes (Other)
  Sender: NOVO NORDISK
  Company Number: US-NOVOPROD-1196581

PATIENT
  Age: 73 Year
  Sex: Female

DRUGS (2)
  1. OZEMPIC [Suspect]
     Active Substance: SEMAGLUTIDE
     Indication: Glucose tolerance impaired
     Dosage: 0.25 MG
     Route: 058
  2. OZEMPIC [Suspect]
     Active Substance: SEMAGLUTIDE
     Indication: Glucose tolerance impaired
     Dosage: UNK
     Route: 058

REACTIONS (14)
  - Impaired gastric emptying [Unknown]
  - Condition aggravated [Unknown]
  - Haematemesis [Unknown]
  - Malaise [Unknown]
  - Breast mass [Unknown]
  - Breast pain [Unknown]
  - Weight loss poor [Unknown]
  - Injection site bruising [Unknown]
  - Vomiting [Recovered/Resolved]
  - Nausea [Unknown]
  - Dyspepsia [Unknown]
  - Off label use [Unknown]
  - Wrong technique in product usage process [Unknown]
  - Product use complaint [Unknown]
